FAERS Safety Report 18380427 (Version 1)
Quarter: 2020Q4

REPORT INFORMATION
  Report Type: Spontaneous
  Country: KR (occurrence: KR)
  Receive Date: 20201014
  Receipt Date: 20201014
  Transmission Date: 20210114
  Serious: Yes (Life-Threatening, Hospitalization)
  Sender: FDA-Public Use
  Company Number: KR-TEVA-2020-KR-1837387

PATIENT
  Age: 18 Year
  Sex: Male

DRUGS (11)
  1. SODIUM BENZOATE [Suspect]
     Active Substance: SODIUM BENZOATE
     Indication: HYPERAMMONAEMIC ENCEPHALOPATHY
     Dosage: 170 MG/KG: LOADING DOSE
     Route: 041
     Dates: start: 201905
  2. SODIUM PHENYLBUTYRATE. [Concomitant]
     Active Substance: SODIUM PHENYLBUTYRATE
     Indication: HYPERAMMONAEMIC ENCEPHALOPATHY
     Dosage: 20 GRAM DAILY;
     Route: 065
     Dates: start: 201905
  3. LACTULOSE. [Concomitant]
     Active Substance: LACTULOSE
     Indication: HYPERAMMONAEMIC ENCEPHALOPATHY
     Route: 065
     Dates: start: 201905
  4. RIFAXIMIN. [Concomitant]
     Active Substance: RIFAXIMIN
     Indication: HYPERAMMONAEMIC ENCEPHALOPATHY
     Route: 065
     Dates: start: 201905
  5. DOXORUBICIN [Suspect]
     Active Substance: DOXORUBICIN
     Indication: HEPATOCELLULAR CARCINOMA
     Dosage: ON DAYS 1 AND 2
     Route: 065
     Dates: start: 201905
  6. CISPLATIN. [Suspect]
     Active Substance: CISPLATIN
     Indication: HEPATOCELLULAR CARCINOMA
     Dosage: ON DAY 1
     Route: 065
     Dates: start: 201905
  7. INTERFERON-ALPHA [Suspect]
     Active Substance: INTERFERON ALFA-2A OR INTERFERON ALFA-2B
     Indication: HEPATOCELLULAR CARCINOMA
     Dosage: 5 X 10E8 U/M2 ON DAYS 1-4
     Route: 065
     Dates: start: 201905, end: 201905
  8. SODIUM BENZOATE [Suspect]
     Active Substance: SODIUM BENZOATE
     Dosage: 5.4 GRAM DAILY;
     Route: 041
     Dates: start: 201905
  9. SODIUM BENZOATE [Suspect]
     Active Substance: SODIUM BENZOATE
     Dosage: 8.8 GRAM DAILY; CONTINUOUS INFUSION
     Route: 041
     Dates: start: 201905
  10. 5-FLUOROURACIL [Suspect]
     Active Substance: FLUOROURACIL
     Indication: HEPATOCELLULAR CARCINOMA
     Dosage: ON DAYS 1-4
     Route: 065
     Dates: start: 201905, end: 201905
  11. DEXTROSE. [Concomitant]
     Active Substance: DEXTROSE
     Indication: HYPERAMMONAEMIC ENCEPHALOPATHY
     Dosage: 20 GRAM DAILY;
     Route: 065
     Dates: start: 201905

REACTIONS (3)
  - Depressed level of consciousness [Recovered/Resolved]
  - Hyperammonaemic encephalopathy [Recovered/Resolved]
  - Rebound effect [Recovered/Resolved]

NARRATIVE: CASE EVENT DATE: 201905
